FAERS Safety Report 16541264 (Version 2)
Quarter: 2019Q3

REPORT INFORMATION
  Report Type: Spontaneous
  Country: US (occurrence: US)
  Receive Date: 20190708
  Receipt Date: 20190912
  Transmission Date: 20191004
  Serious: Yes (Hospitalization)
  Sender: FDA-Public Use
  Company Number: US-OTSUKA-2019_025290

PATIENT
  Sex: Male

DRUGS (2)
  1. ABILIFY MAINTENA [Suspect]
     Active Substance: ARIPIPRAZOLE
     Indication: PRODUCT USED FOR UNKNOWN INDICATION
     Dosage: 400 MG, QM
     Route: 065
     Dates: start: 201906
  2. ABILIFY [Suspect]
     Active Substance: ARIPIPRAZOLE
     Indication: BIPOLAR DISORDER
     Dosage: 5 MG, QD
     Route: 065
     Dates: start: 201803

REACTIONS (14)
  - Feeling abnormal [Recovered/Resolved]
  - Confusional state [Unknown]
  - Bipolar I disorder [Unknown]
  - Anosognosia [Unknown]
  - Therapy cessation [Unknown]
  - Incorrect dose administered [Unknown]
  - Disorientation [Unknown]
  - Depression [Unknown]
  - Mental impairment [Unknown]
  - Drug ineffective [Unknown]
  - Refusal of treatment by patient [Unknown]
  - Psychiatric decompensation [Unknown]
  - Withdrawal syndrome [Unknown]
  - Insurance issue [Unknown]

NARRATIVE: CASE EVENT DATE: 2018
